FAERS Safety Report 7683524-3 (Version None)
Quarter: 2011Q3

REPORT INFORMATION
  Report Type: 
  Country: None (occurrence: None)
  Receive Date: 20110815
  Receipt Date: 20110805
  Transmission Date: 20111222
  Serious: Yes (Hospitalization)
  Sender: FDA-Public Use
  Company Number: US-ASTRAZENECA-2011SE47005

PATIENT
  Age: 61 Year
  Sex: Female

DRUGS (6)
  1. CITALOPRAM HYDROBROMIDE [Concomitant]
  2. PROPRANOLOL [Concomitant]
  3. MIRTAZAPINE [Concomitant]
  4. ALPRAZOLAM [Concomitant]
  5. GABAPENTIN [Concomitant]
  6. SEROQUEL [Suspect]
     Indication: BIPOLAR DISORDER
     Route: 048

REACTIONS (2)
  - DRUG DOSE OMISSION [None]
  - PSYCHIATRIC DECOMPENSATION [None]
